FAERS Safety Report 5879305-3 (Version None)
Quarter: 2008Q3

REPORT INFORMATION
  Report Type: 
  Country: None (occurrence: None)
  Receive Date: 20080912
  Receipt Date: 20080903
  Transmission Date: 20090109
  Serious: Yes (Other)
  Sender: FDA-Public Use
  Company Number: US-JNJFOC-20080800577

PATIENT
  Age: 64 Year
  Sex: Female
  Weight: 63.5 kg

DRUGS (3)
  1. REMICADE [Suspect]
     Indication: RHEUMATOID ARTHRITIS
     Dosage: FIRST DOSE
     Route: 042
  2. SYNTHROID [Concomitant]
     Indication: HYPOTHYROIDISM
  3. METHOTREXATE [Concomitant]
     Route: 042

REACTIONS (5)
  - APHTHOUS STOMATITIS [None]
  - ORAL DISORDER [None]
  - ORAL HERPES [None]
  - PUSTULAR PSORIASIS [None]
  - TOXIC EPIDERMAL NECROLYSIS [None]
